FAERS Safety Report 8820015 (Version 3)
Quarter: 2013Q3

REPORT INFORMATION
  Report Type: Report from Study
  Country: JP (occurrence: JP)
  Receive Date: 20121001
  Receipt Date: 20130906
  Transmission Date: 20140515
  Serious: Yes (Life-Threatening, Hospitalization, Other)
  Sender: FDA-Public Use
  Company Number: JP-VERTEX PHARMACEUTICAL INC.-AE-2012-004723

PATIENT
  Age: 66 Year
  Sex: Female

DRUGS (16)
  1. VX-950 (TELAPREVIR) [Suspect]
     Indication: CHRONIC HEPATITIS C
     Dosage: 2250 MG, QD
     Route: 048
     Dates: start: 20120207, end: 20120417
  2. VX-950 (TELAPREVIR) [Suspect]
     Dosage: 1500 MG, QD
     Route: 048
     Dates: start: 20120418, end: 20120419
  3. PEGINTRON [Suspect]
     Indication: CHRONIC HEPATITIS C
     Dosage: 1.5 ?G/KG, QW
     Route: 058
     Dates: start: 20120207, end: 20120417
  4. REBETOL [Suspect]
     Indication: CHRONIC HEPATITIS C
     Dosage: 600 MG, QD
     Route: 048
     Dates: start: 20120207, end: 20120313
  5. REBETOL [Suspect]
     Dosage: 400 MG, QD
     Route: 048
     Dates: start: 20120314, end: 20120327
  6. REBETOL [Suspect]
     Dosage: 200 MG, QD
     Route: 048
     Dates: start: 20120328, end: 20120419
  7. LEDOLPER [Suspect]
     Indication: INSOMNIA
     Dosage: 0.25 MG, PRN
     Route: 048
     Dates: start: 20120207
  8. LEDOLPER [Suspect]
     Indication: PROPHYLAXIS
     Dosage: 0.25 MG, PRN
     Route: 048
     Dates: start: 20120423, end: 20120502
  9. LICKLE [Suspect]
     Indication: HYPOALBUMINAEMIA
     Dosage: 13.22 G, QD
     Route: 048
     Dates: start: 20120420, end: 20120426
  10. LASIX [Suspect]
     Indication: HYPOALBUMINAEMIA
     Dosage: 20 MG, QD
     Route: 048
     Dates: start: 20120420, end: 20120502
  11. ALDACTONE A [Suspect]
     Indication: HYPOALBUMINAEMIA
     Dosage: 25 MG, QD
     Route: 048
     Dates: start: 20120420, end: 20120517
  12. AMLODIPINE [Suspect]
     Indication: HYPERTENSION
     Dosage: 5 MG, QD
     Route: 048
     Dates: start: 20120417
  13. CALONAL [Concomitant]
     Dosage: 2 DF, PRN
     Route: 048
     Dates: start: 20120207, end: 20120420
  14. PARIET [Concomitant]
     Dosage: 10 MG, QD
     Route: 048
     Dates: start: 20120525
  15. GASMOTIN [Concomitant]
     Dosage: 3 DF, QD
     Route: 048
     Dates: start: 20120319, end: 20120417
  16. NAUZELIN [Concomitant]
     Dosage: 1 DF, PRN
     Route: 048
     Dates: start: 20120319, end: 20120417

REACTIONS (4)
  - Immune thrombocytopenic purpura [Recovered/Resolved]
  - Hypoalbuminaemia [Recovered/Resolved]
  - Malaise [Recovered/Resolved]
  - Haemoglobin decreased [Recovered/Resolved]
